FAERS Safety Report 8870280 (Version 1)
Quarter: 2012Q4

REPORT INFORMATION
  Report Type: 
  Country: US (occurrence: US)
  Receive Date: 20121026
  Receipt Date: 20121026
  Transmission Date: 20130627
  Serious: No
  Sender: FDA-Public Use
  Company Number: US-AMGEN-USASP2012048002

PATIENT
  Sex: Female
  Weight: 94.33 kg

DRUGS (7)
  1. ENBREL [Suspect]
     Indication: PRODUCT USED FOR UNKNOWN INDICATION
     Dosage: 50 mg, qwk
     Route: 058
  2. FOLIC ACID [Concomitant]
     Dosage: 1 mg, UNK
  3. CENTRUM SILVER                     /02363801/ [Concomitant]
     Dosage: UNK
  4. METFORMIN [Concomitant]
     Dosage: 500 mg, UNK
  5. DESOXIMETASONE [Concomitant]
     Dosage: 0.05 %, UNK
  6. ALEVE [Concomitant]
     Dosage: 220 mg, UNK
  7. TYLENOL 8 HOUR [Concomitant]
     Dosage: 650 mg, UNK
     Dates: start: 2006

REACTIONS (1)
  - Musculoskeletal stiffness [Unknown]
